FAERS Safety Report 10252119 (Version 2)
Quarter: 2014Q2

REPORT INFORMATION
  Report Type: Report from Study
  Country: US (occurrence: US)
  Receive Date: 20140623
  Receipt Date: 20140623
  Transmission Date: 20141212
  Serious: Yes (Hospitalization, Other)
  Sender: FDA-Public Use
  Company Number: PHEH2014US011689

PATIENT
  Age: 13 Year
  Sex: Female
  Weight: 45.81 kg

DRUGS (7)
  1. TOBI PODHALER [Suspect]
     Indication: CYSTIC FIBROSIS
     Dosage: 112 MG, BID
     Route: 055
  2. TOBI PODHALER [Suspect]
     Dosage: UNK UKN, UNK
  3. QVAR [Concomitant]
     Dosage: UNK
  4. PULMOZYME [Concomitant]
     Dosage: UNK
  5. CASTON [Concomitant]
     Dosage: UNK
  6. ZENPEP [Concomitant]
     Dosage: UNK
  7. SINGULAIR [Concomitant]
     Dosage: UNK

REACTIONS (11)
  - Staphylococcus test positive [Unknown]
  - Pseudomonas test positive [Unknown]
  - Atelectasis [Unknown]
  - Lung infiltration [Unknown]
  - Condition aggravated [Recovering/Resolving]
  - Cystic fibrosis [Recovering/Resolving]
  - Obstructive airways disorder [Unknown]
  - Nasopharyngitis [Unknown]
  - Productive cough [Unknown]
  - Dyspnoea exertional [Unknown]
  - Wheezing [Unknown]
